FAERS Safety Report 19825792 (Version 1)
Quarter: 2021Q3

REPORT INFORMATION
  Report Type: Spontaneous
  Country: US (occurrence: US)
  Receive Date: 20210914
  Receipt Date: 20210914
  Transmission Date: 20211014
  Serious: Yes (Other)
  Sender: FDA-Public Use
  Company Number: None

PATIENT
  Age: 56 Year
  Sex: Male

DRUGS (7)
  1. HUMALOG MIX50/50 [Concomitant]
     Active Substance: INSULIN LISPRO
  2. LANTUS SOLOSTAR [Concomitant]
     Active Substance: INSULIN GLARGINE
  3. REVLIMID [Suspect]
     Active Substance: LENALIDOMIDE
     Indication: PLASMA CELL MYELOMA
     Route: 048
     Dates: start: 20200820
  4. ASPIRIN 81 MG [Concomitant]
     Active Substance: ASPIRIN
  5. OXYCODONE/ACETAMINOPHEN 10/325 [Concomitant]
     Active Substance: ACETAMINOPHEN\OXYCODONE HYDROCHLORIDE
  6. FERROUS SULFATE 325MG [Concomitant]
     Active Substance: FERROUS SULFATE
  7. ACYCLOVIR 400 MG [Concomitant]
     Active Substance: ACYCLOVIR

REACTIONS (1)
  - Product dose omission issue [None]

NARRATIVE: CASE EVENT DATE: 20210914
